FAERS Safety Report 5739484-5 (Version None)
Quarter: 2008Q2

REPORT INFORMATION
  Report Type: 
  Country: None (occurrence: None)
  Receive Date: 20080515
  Receipt Date: 20080506
  Transmission Date: 20081010
  Serious: Yes (Death, Hospitalization)
  Sender: FDA-Public Use
  Company Number: GR-ASTRAZENECA-2008SE02362

PATIENT
  Age: 82 Year
  Sex: Male

DRUGS (1)
  1. SEROQUEL [Suspect]
     Indication: DEPRESSION
     Route: 048
     Dates: end: 20080502

REACTIONS (3)
  - DYSPNOEA [None]
  - LETHARGY [None]
  - RESPIRATORY FAILURE [None]
